FAERS Safety Report 21098898 (Version 1)
Quarter: 2022Q3

REPORT INFORMATION
  Report Type: Spontaneous
  Country: AU (occurrence: AU)
  Receive Date: 20220719
  Receipt Date: 20220719
  Transmission Date: 20221026
  Serious: Yes (Other)
  Sender: FDA-Public Use
  Company Number: AU-002147023-PHHY2016AU121778

PATIENT
  Age: 59 Year
  Sex: Male

DRUGS (10)
  1. CLOZARIL [Suspect]
     Active Substance: CLOZAPINE
     Indication: Schizophrenia
     Dosage: 350 MG, PM
     Route: 065
     Dates: start: 2005
  2. CLOZARIL [Suspect]
     Active Substance: CLOZAPINE
     Dosage: 255 MILLIGRAM
     Route: 048
     Dates: start: 20050816
  3. ATENOLOL [Concomitant]
     Active Substance: ATENOLOL
     Indication: Product used for unknown indication
     Dosage: 50 MG, AM
     Route: 065
  4. ROSUVASTATIN [Concomitant]
     Active Substance: ROSUVASTATIN
     Indication: Product used for unknown indication
     Dosage: 20 MG, PM
     Route: 065
  5. CALCIUM [Concomitant]
     Active Substance: CALCIUM
     Indication: Product used for unknown indication
     Dosage: 600 MG, UNK
     Route: 065
  6. VITAMIN D [Concomitant]
     Active Substance: VITAMIN D NOS
     Indication: Product used for unknown indication
     Dosage: UNK
     Route: 065
  7. PANTOPRAZOLE [Concomitant]
     Active Substance: PANTOPRAZOLE
     Indication: Product used for unknown indication
     Dosage: 40 MG, AM
     Route: 065
  8. ASPIRIN [Concomitant]
     Active Substance: ASPIRIN
     Indication: Product used for unknown indication
     Dosage: 100 MG, AM
     Route: 065
  9. METOPROLOL [Concomitant]
     Active Substance: METOPROLOL
     Indication: Product used for unknown indication
     Dosage: 25 MG, BID
     Route: 048
  10. Panadeine [Concomitant]
     Indication: Product used for unknown indication
     Dosage: 2 DF, PRN
     Route: 065

REACTIONS (11)
  - Troponin increased [Not Recovered/Not Resolved]
  - Renal impairment [Not Recovered/Not Resolved]
  - Diastolic dysfunction [Unknown]
  - Systolic dysfunction [Unknown]
  - Bundle branch block right [Unknown]
  - Electrocardiogram ST segment elevation [Unknown]
  - Antipsychotic drug level above therapeutic [Unknown]
  - Haemoglobin decreased [Unknown]
  - Lymphocyte count decreased [Unknown]
  - Mean cell haemoglobin decreased [Unknown]
  - Haematocrit decreased [Unknown]

NARRATIVE: CASE EVENT DATE: 20140801
